FAERS Safety Report 5324273-6 (Version None)
Quarter: 2007Q2

REPORT INFORMATION
  Report Type: 
  Country: None (occurrence: None)
  Receive Date: 20070514
  Receipt Date: 20070509
  Transmission Date: 20071010
  Serious: Yes (Other)
  Sender: FDA-Public Use
  Company Number: NL-SHR-NL-2007-016539

PATIENT
  Age: 33 Year
  Sex: Female
  Weight: 120 kg

DRUGS (3)
  1. MIRENA [Suspect]
     Indication: CONTRACEPTION
     Dosage: 20 A?G/DAY, CONT
     Route: 015
     Dates: start: 20040101, end: 20061007
  2. PARIET [Concomitant]
     Dosage: 20 MG, 1X/DAY
     Dates: start: 20040415, end: 20061007
  3. OMEPRAZOLE [Concomitant]
     Dosage: 20 MG, 1X/DAY
     Dates: start: 20061008

REACTIONS (1)
  - ARTHROPATHY [None]
